FAERS Safety Report 12603088 (Version 1)
Quarter: 2016Q3

REPORT INFORMATION
  Report Type: Spontaneous
  Country: BR (occurrence: BR)
  Receive Date: 20160728
  Receipt Date: 20160728
  Transmission Date: 20161109
  Serious: Yes (Other)
  Sender: FDA-Public Use
  Company Number: BR-AMGEN-BRASP2013053635

PATIENT
  Age: 42 Year
  Sex: Male
  Weight: 100 kg

DRUGS (2)
  1. ENBREL [Suspect]
     Active Substance: ETANERCEPT
     Indication: PSORIASIS
     Dosage: 50 MG, 1X/WEEK
     Route: 058
     Dates: start: 201305
  2. ENBREL [Suspect]
     Active Substance: ETANERCEPT
     Dosage: UNK
     Route: 065
     Dates: start: 20130607

REACTIONS (6)
  - Anxiety [Unknown]
  - Blood pressure increased [Unknown]
  - Injection site pain [Unknown]
  - Hypothermia [Unknown]
  - Swelling [Unknown]
  - Haematoma [Unknown]

NARRATIVE: CASE EVENT DATE: 2013
